FAERS Safety Report 10404926 (Version 1)
Quarter: 2014Q3

REPORT INFORMATION
  Report Type: Not Available
  Country: US (occurrence: US)
  Receive Date: 20140825
  Receipt Date: 20140825
  Transmission Date: 20150326
  Serious: No
  Sender: FDA-Public Use
  Company Number: US-LUPIN PHARMACEUTICALS INC.-2014-01322

PATIENT
  Sex: Female

DRUGS (1)
  1. RABEPRAZOLE SODIUM DELAYED-RELEASE 20MG TABLETS [Suspect]
     Active Substance: RABEPRAZOLE SODIUM
     Indication: PRODUCT USED FOR UNKNOWN INDICATION
     Route: 065

REACTIONS (3)
  - Sleep disorder due to a general medical condition [Recovering/Resolving]
  - Gastrooesophageal reflux disease [Recovering/Resolving]
  - Product substitution issue [Recovering/Resolving]
